FAERS Safety Report 7777028-7 (Version None)
Quarter: 2011Q3

REPORT INFORMATION
  Report Type: 
  Country: None (occurrence: None)
  Receive Date: 20110926
  Receipt Date: 20110926
  Transmission Date: 20111222
  Serious: No
  Sender: FDA-Public Use
  Company Number: None

PATIENT
  Sex: Female
  Weight: 41.73 kg

DRUGS (2)
  1. NORTRIPTYLINE HCL [Concomitant]
     Dosage: ONE CAPSULE
     Route: 048
  2. NORTRIPTYLINE HCL [Suspect]
     Indication: DEPRESSION
     Dosage: ONE CAPSULE
     Route: 048

REACTIONS (4)
  - DELUSION [None]
  - HALLUCINATION [None]
  - NIGHTMARE [None]
  - INITIAL INSOMNIA [None]
